FAERS Safety Report 17757721 (Version 3)
Quarter: 2020Q4

REPORT INFORMATION
  Report Type: Spontaneous
  Country: US (occurrence: US)
  Receive Date: 20200507
  Receipt Date: 20201214
  Transmission Date: 20210113
  Serious: Yes (Hospitalization, Other)
  Sender: FDA-Public Use
  Company Number: US-NAPPMUNDI-USA-2020-0152616

PATIENT
  Age: 62 Year
  Weight: 108 kg

DRUGS (9)
  1. OXYCONTIN [Suspect]
     Active Substance: OXYCODONE HYDROCHLORIDE
     Indication: PAIN
     Dosage: UNK
     Route: 048
     Dates: start: 20151015
  2. DILAUDID [Suspect]
     Active Substance: HYDROMORPHONE HYDROCHLORIDE
     Indication: PRODUCT USED FOR UNKNOWN INDICATION
     Dosage: UNK
     Route: 048
  3. OXYCODONE/ ACETAMINOPHEN TABLETS [Suspect]
     Active Substance: ACETAMINOPHEN\OXYCODONE HYDROCHLORIDE
     Indication: PRODUCT USED FOR UNKNOWN INDICATION
     Dosage: UNK
     Route: 048
  4. HYDROCODONE BITARTRATE/ACETAMINOPHEN [Suspect]
     Active Substance: ACETAMINOPHEN\HYDROCODONE BITARTRATE
     Indication: PRODUCT USED FOR UNKNOWN INDICATION
     Dosage: UNK
     Route: 048
  5. FENTANYL. [Suspect]
     Active Substance: FENTANYL
     Indication: PAIN
     Dosage: UNK
     Route: 065
  6. OXYCODONE HCL CR TABLETS (SIMILAR TO NDA 22-272) [Suspect]
     Active Substance: OXYCODONE HYDROCHLORIDE
     Indication: PRODUCT USED FOR UNKNOWN INDICATION
     Dosage: UNK
     Route: 048
  7. LYRICA [Suspect]
     Active Substance: PREGABALIN
     Indication: PRODUCT USED FOR UNKNOWN INDICATION
     Dosage: 150 MG, UNK
     Route: 065
  8. OXYCODONE HYDROCHLORIDE (SIMILAR TO NDA 22-272) [Suspect]
     Active Substance: OXYCODONE HYDROCHLORIDE
     Indication: PAIN
     Dosage: UNK
     Route: 048
     Dates: start: 20151015
  9. LYRICA [Suspect]
     Active Substance: PREGABALIN
     Dosage: 25 MG, UNK
     Route: 065

REACTIONS (20)
  - Hospitalisation [Unknown]
  - Seizure [Unknown]
  - Drug dependence [Not Recovered/Not Resolved]
  - Learning disability [Unknown]
  - Brain injury [Not Recovered/Not Resolved]
  - Cellulitis [Unknown]
  - Cardiac disorder [Unknown]
  - Surgery [Unknown]
  - Gait disturbance [Not Recovered/Not Resolved]
  - Fall [Not Recovered/Not Resolved]
  - Drug withdrawal syndrome [Not Recovered/Not Resolved]
  - Developmental delay [Unknown]
  - Seroma [Unknown]
  - Congenital anomaly [Unknown]
  - Renal disorder [Unknown]
  - Unresponsive to stimuli [Unknown]
  - Heart rate increased [Unknown]
  - Infection [Unknown]
  - Transient ischaemic attack [Unknown]
  - Delirium [Unknown]

NARRATIVE: CASE EVENT DATE: 201604
